FAERS Safety Report 21005366 (Version 1)
Quarter: 2022Q2

REPORT INFORMATION
  Report Type: Report from Study
  Country: CL (occurrence: CL)
  Receive Date: 20220624
  Receipt Date: 20220624
  Transmission Date: 20220721
  Serious: Yes (Other)
  Sender: FDA-Public Use
  Company Number: CL-JNJFOC-20220635739

PATIENT
  Age: 61 Year
  Sex: Female

DRUGS (1)
  1. SIMPONI [Suspect]
     Active Substance: GOLIMUMAB
     Indication: Psoriatic arthropathy
     Dosage: PREVIOUS ADHERENCE REGISTERED IN THE SYSTEM ON MAY 13, 2022.
     Route: 058
     Dates: start: 20220106

REACTIONS (2)
  - Spinal operation [Unknown]
  - COVID-19 [Unknown]

NARRATIVE: CASE EVENT DATE: 20220401
